FAERS Safety Report 10381111 (Version 3)
Quarter: 2014Q3

REPORT INFORMATION
  Report Type: Spontaneous
  Country: US (occurrence: None)
  Receive Date: 20140808
  Receipt Date: 20140822
  Transmission Date: 20150326
  Serious: Yes (Other)
  Sender: FDA-Public Use
  Company Number: 2014US006518

PATIENT
  Age: 72 Year
  Sex: Male
  Weight: 73 kg

DRUGS (2)
  1. WARFARIN [Concomitant]
     Active Substance: WARFARIN
  2. ELIGARD [Suspect]
     Active Substance: LEUPROLIDE ACETATE
     Indication: PROSTATE CANCER
     Dosage: EVERY 6 MONTHS
     Dates: start: 20140620

REACTIONS (13)
  - Hypopnoea [None]
  - Weight decreased [None]
  - Memory impairment [None]
  - Asthenia [None]
  - Dizziness [None]
  - Nocturnal dyspnoea [None]
  - General physical health deterioration [None]
  - Nervousness [None]
  - Arthralgia [None]
  - Myalgia [None]
  - Gait disturbance [None]
  - Sexual dysfunction [None]
  - Decreased appetite [None]

NARRATIVE: CASE EVENT DATE: 2014
